FAERS Safety Report 23159033 (Version 3)
Quarter: 2023Q4

REPORT INFORMATION
  Report Type: Spontaneous
  Country: JP (occurrence: JP)
  Receive Date: 20231108
  Receipt Date: 20231205
  Transmission Date: 20240109
  Serious: Yes (Other)
  Sender: FDA-Public Use
  Company Number: JP-MSD-2310JPN004423JAA

PATIENT
  Age: 8 Decade
  Sex: Male

DRUGS (1)
  1. JANUVIA [Suspect]
     Active Substance: SITAGLIPTIN PHOSPHATE
     Indication: Diabetes mellitus
     Dosage: UNK

REACTIONS (4)
  - Portal venous gas [Recovering/Resolving]
  - Gastric pneumatosis [Recovering/Resolving]
  - Vomiting [Recovered/Resolved]
  - Product use issue [Unknown]
